FAERS Safety Report 22833491 (Version 3)
Quarter: 2025Q2

REPORT INFORMATION
  Report Type: Spontaneous
  Country: US (occurrence: US)
  Receive Date: 20230817
  Receipt Date: 20250519
  Transmission Date: 20250716
  Serious: No
  Sender: AMGEN
  Company Number: US-AMGEN-USASL2023144546

PATIENT
  Age: 62 Year
  Sex: Male

DRUGS (28)
  1. OTEZLA [Suspect]
     Active Substance: APREMILAST
     Indication: Psoriatic arthropathy
     Dosage: 30 MILLIGRAM, BID
     Route: 048
     Dates: start: 20230608
  2. OTEZLA [Suspect]
     Active Substance: APREMILAST
     Dosage: 30 MILLIGRAM, BID
     Route: 048
     Dates: start: 2023
  3. PREDNISONE [Suspect]
     Active Substance: PREDNISONE
     Indication: Product used for unknown indication
     Route: 065
  4. ASPIRIN [Concomitant]
     Active Substance: ASPIRIN
  5. CELECOXIB [Concomitant]
     Active Substance: CELECOXIB
  6. EPINEPHRINE [Concomitant]
     Active Substance: EPINEPHRINE
  7. FOLIC ACID [Concomitant]
     Active Substance: FOLIC ACID
  8. FOLIC ACID [Concomitant]
     Active Substance: FOLIC ACID
  9. LISINOPRIL [Concomitant]
     Active Substance: LISINOPRIL
  10. METHOTREXATE [Concomitant]
     Active Substance: METHOTREXATE
  11. METHOTREXATE [Concomitant]
     Active Substance: METHOTREXATE
  12. METHYLPREDNISOLONE [Concomitant]
     Active Substance: METHYLPREDNISOLONE
  13. OMEPRAZOLE [Concomitant]
     Active Substance: OMEPRAZOLE
  14. OMEPRAZOLE [Concomitant]
     Active Substance: OMEPRAZOLE
  15. PNEUMOVAX 23 [Concomitant]
     Active Substance: PNEUMOCOCCAL VACCINE, POLYVALENT 23
  16. SILDENAFIL [Concomitant]
     Active Substance: SILDENAFIL
  17. TALTZ [Concomitant]
     Active Substance: IXEKIZUMAB
  18. NAPROXEN [Concomitant]
     Active Substance: NAPROXEN
  19. MOXIFLOXACIN [Concomitant]
     Active Substance: MOXIFLOXACIN
  20. HYDROCODONE [Concomitant]
     Active Substance: HYDROCODONE
  21. ERYTHROMYCIN [Concomitant]
     Active Substance: ERYTHROMYCIN
  22. BUDESONIDE [Concomitant]
     Active Substance: BUDESONIDE
  23. ALLOPURINOL [Concomitant]
     Active Substance: ALLOPURINOL
  24. ALBUTEROL SULFATE [Concomitant]
     Active Substance: ALBUTEROL SULFATE
  25. ARNUITY ELLIPTA [Concomitant]
     Active Substance: FLUTICASONE FUROATE
  26. IBUPROFEN [Concomitant]
     Active Substance: IBUPROFEN
  27. ISOVUE 370 [Concomitant]
     Active Substance: IOPAMIDOL
  28. ORENCIA [Concomitant]
     Active Substance: ABATACEPT

REACTIONS (3)
  - Pain [Not Recovered/Not Resolved]
  - Therapy non-responder [Not Recovered/Not Resolved]
  - Sinusitis [Not Recovered/Not Resolved]

NARRATIVE: CASE EVENT DATE: 20230101
